FAERS Safety Report 11976610 (Version 1)
Quarter: 2016Q1

REPORT INFORMATION
  Report Type: Spontaneous
  Country: US (occurrence: US)
  Receive Date: 20160129
  Receipt Date: 20160129
  Transmission Date: 20160526
  Serious: Yes (Hospitalization, Disabling)
  Sender: FDA-Public Use
  Company Number: US-DRREDDYS-USA/USA/16/0065501

PATIENT
  Age: 59 Year
  Sex: Male

DRUGS (6)
  1. SORAFENIB [Suspect]
     Active Substance: SORAFENIB
     Route: 048
  2. CYTARABINE. [Suspect]
     Active Substance: CYTARABINE
     Indication: ACUTE MYELOID LEUKAEMIA
     Route: 065
  3. DAUNORUBICIN [Suspect]
     Active Substance: DAUNORUBICIN
     Indication: ACUTE MYELOID LEUKAEMIA
     Route: 065
  4. DECITABINE. [Suspect]
     Active Substance: DECITABINE
     Indication: ACUTE MYELOID LEUKAEMIA
     Route: 065
  5. DECITABINE. [Suspect]
     Active Substance: DECITABINE
     Route: 065
  6. SORAFENIB [Suspect]
     Active Substance: SORAFENIB
     Indication: ACUTE MYELOID LEUKAEMIA
     Route: 048

REACTIONS (2)
  - Pneumonia [Unknown]
  - Eastern Cooperative Oncology Group performance status worsened [Unknown]
